FAERS Safety Report 8244195-0 (Version None)
Quarter: 2012Q1

REPORT INFORMATION
  Report Type: 
  Country: None (occurrence: None)
  Receive Date: 20120329
  Receipt Date: 20120322
  Transmission Date: 20120608
  Serious: Yes (Hospitalization)
  Sender: FDA-Public Use
  Company Number: US-MERCK-1203USA03012

PATIENT
  Age: 15 Year
  Sex: Female

DRUGS (2)
  1. PROZAC [Concomitant]
     Route: 065
  2. ZOCOR [Suspect]
     Indication: DEPRESSION
     Route: 048
     Dates: start: 20120101, end: 20120301

REACTIONS (4)
  - SUICIDAL IDEATION [None]
  - AGGRESSION [None]
  - HALLUCINATION, AUDITORY [None]
  - HOMICIDAL IDEATION [None]
